FAERS Safety Report 9255643 (Version 1)
Quarter: 2013Q2

REPORT INFORMATION
  Report Type: Spontaneous
  Country: DE (occurrence: DE)
  Receive Date: 20130425
  Receipt Date: 20130425
  Transmission Date: 20140414
  Serious: Yes (Other)
  Sender: FDA-Public Use
  Company Number: DE-GLAXOSMITHKLINE-D0079109A

PATIENT
  Age: 74 Year
  Sex: Male

DRUGS (1)
  1. DUODART [Suspect]
     Route: 048
     Dates: start: 20111107, end: 20130311

REACTIONS (2)
  - Erythema multiforme [Recovered/Resolved]
  - Rash pruritic [Recovered/Resolved]
